FAERS Safety Report 10253154 (Version 1)
Quarter: 2014Q2

REPORT INFORMATION
  Report Type: Spontaneous
  Country: FR (occurrence: FR)
  Receive Date: 20140623
  Receipt Date: 20140623
  Transmission Date: 20141212
  Serious: Yes (Hospitalization)
  Sender: FDA-Public Use
  Company Number: FR-GLAXOSMITHKLINE-B1004652A

PATIENT
  Age: 60 Year
  Sex: Male

DRUGS (11)
  1. TAFINLAR [Suspect]
     Indication: METASTATIC MALIGNANT MELANOMA
     Dosage: 75MG FOUR TIMES PER DAY
     Route: 048
     Dates: start: 20140327
  2. LEVOTHYROX [Concomitant]
     Dosage: 150MCG UNKNOWN
     Route: 065
  3. KENZEN [Concomitant]
     Dosage: 8MG UNKNOWN
     Route: 065
  4. STAGID [Concomitant]
     Dosage: 700MG THREE TIMES PER DAY
     Route: 065
  5. LANTUS [Concomitant]
     Dosage: 63IU PER DAY
     Route: 065
  6. NOVORAPID [Concomitant]
     Route: 065
  7. ATARAX [Concomitant]
     Dosage: 25MG UNKNOWN
     Route: 065
  8. DOLIPRANE [Concomitant]
     Dosage: 1G THREE TIMES PER DAY
     Route: 065
  9. LANSOYL [Concomitant]
     Route: 065
  10. OXYCONTIN [Concomitant]
     Dosage: 10MG TWICE PER DAY
     Route: 065
  11. OXYCONTIN [Concomitant]
     Dosage: 5MG UNKNOWN
     Route: 065

REACTIONS (4)
  - Pain in extremity [Recovered/Resolved]
  - Hyporeflexia [Recovered/Resolved]
  - Diabetes mellitus inadequate control [Recovered/Resolved]
  - Radiculopathy [Recovered/Resolved]
